FAERS Safety Report 5071482-X (Version None)
Quarter: 2006Q3

REPORT INFORMATION
  Report Type: 
  Country: None (occurrence: None)
  Receive Date: 20060801
  Receipt Date: 20060726
  Transmission Date: 20061208
  Serious: Yes (Hospitalization, Other)
  Sender: FDA-Public Use
  Company Number: 2005BI022737

PATIENT
  Age: 49 Year
  Sex: Male

DRUGS (2)
  1. AVONEX [Suspect]
     Indication: MULTIPLE SCLEROSIS
     Dosage: 30 UG;QW;IM
     Route: 030
     Dates: start: 20050928, end: 20051209
  2. AVONEX [Suspect]
     Indication: MULTIPLE SCLEROSIS
     Dosage: IM
     Route: 030

REACTIONS (4)
  - BACTERIAL SEPSIS [None]
  - GASTROENTERITIS ESCHERICHIA COLI [None]
  - IMMUNOSUPPRESSION [None]
  - LIVER DISORDER [None]
